FAERS Safety Report 9430436 (Version 4)
Quarter: 2014Q1

REPORT INFORMATION
  Report Type: Report from Study
  Country: AU (occurrence: AU)
  Receive Date: 20130730
  Receipt Date: 20140326
  Transmission Date: 20141002
  Serious: Yes (Hospitalization)
  Sender: FDA-Public Use
  Company Number: AU-GLAXOSMITHKLINE-B0910373A

PATIENT
  Age: 54 Year
  Sex: Male

DRUGS (3)
  1. TRAMETINIB [Suspect]
     Indication: MALIGNANT MELANOMA
     Dosage: 2MG PER DAY
     Route: 048
     Dates: start: 20130620
  2. DABRAFENIB [Suspect]
     Indication: MALIGNANT MELANOMA
     Dosage: 150MG TWICE PER DAY
     Route: 048
     Dates: start: 20130620
  3. TAZOCIN [Suspect]
     Indication: SEPSIS
     Dosage: 4.5G THREE TIMES PER DAY
     Route: 042
     Dates: start: 20130709, end: 20130713

REACTIONS (3)
  - Pyrexia [Recovered/Resolved]
  - Liver function test abnormal [Recovering/Resolving]
  - Hepatitis [Recovered/Resolved]
